FAERS Safety Report 15603071 (Version 3)
Quarter: 2018Q4

REPORT INFORMATION
  Report Type: Spontaneous
  Country: FR (occurrence: FR)
  Receive Date: 20181109
  Receipt Date: 20181130
  Transmission Date: 20190205
  Serious: Yes (Hospitalization)
  Sender: FDA-Public Use
  Company Number: FR-PFIZER INC-2018454156

PATIENT
  Age: 60 Year
  Sex: Female
  Weight: 89 kg

DRUGS (6)
  1. ELOXATIN [Suspect]
     Active Substance: OXALIPLATIN
     Indication: CHEMOTHERAPY
     Dosage: 130 MG/M2, EVERY 3 WEEKS
     Route: 041
     Dates: start: 20120625, end: 20120625
  2. ELOXATIN [Suspect]
     Active Substance: OXALIPLATIN
     Dosage: 130 MG/M2, EVERY 3 WEEKS
     Route: 041
     Dates: start: 20120809, end: 20120809
  3. METHYLPREDNISOLONE SODIUM SUCCINATE. [Suspect]
     Active Substance: METHYLPREDNISOLONE SODIUM SUCCINATE
     Dosage: 60 MG, EVERY 3 WEEKS
     Route: 042
     Dates: start: 20120717, end: 20120717
  4. METHYLPREDNISOLONE SODIUM SUCCINATE. [Suspect]
     Active Substance: METHYLPREDNISOLONE SODIUM SUCCINATE
     Indication: PREMEDICATION
     Dosage: 60 MG, EVERY 3 WEEKS
     Route: 042
     Dates: start: 20120625, end: 20120625
  5. ELOXATIN [Suspect]
     Active Substance: OXALIPLATIN
     Dosage: 130 MG/M2, EVERY 3 WEEKS
     Route: 041
     Dates: start: 20120717, end: 20120717
  6. METHYLPREDNISOLONE SODIUM SUCCINATE. [Suspect]
     Active Substance: METHYLPREDNISOLONE SODIUM SUCCINATE
     Dosage: 60 MG, EVERY 3 WEEKS
     Route: 042
     Dates: start: 20120809, end: 20120809

REACTIONS (6)
  - Hypersensitivity [Recovered/Resolved]
  - Paraesthesia [Recovered/Resolved]
  - Dysphagia [Recovered/Resolved]
  - Peripheral coldness [Recovered/Resolved]
  - Blood pressure decreased [Recovered/Resolved]
  - Malaise [Recovered/Resolved]

NARRATIVE: CASE EVENT DATE: 20120717
